FAERS Safety Report 5518388-7 (Version None)
Quarter: 2007Q4

REPORT INFORMATION
  Report Type: 
  Country: None (occurrence: None)
  Receive Date: 20071115
  Receipt Date: 20071107
  Transmission Date: 20080405
  Serious: Yes (Other)
  Sender: FDA-Public Use
  Company Number: US-MERCK-0711USA01762

PATIENT

DRUGS (5)
  1. JANUVIA [Suspect]
     Route: 065
  2. ZETIA [Concomitant]
     Route: 065
  3. CRESTOR [Concomitant]
     Route: 065
  4. COREG [Concomitant]
     Route: 065
  5. AVALIDE [Concomitant]
     Route: 065

REACTIONS (4)
  - ABDOMINAL PAIN [None]
  - ATRIAL FIBRILLATION [None]
  - NAUSEA [None]
  - SPINAL DISORDER [None]
